FAERS Safety Report 4322354-7 (Version None)
Quarter: 2004Q1

REPORT INFORMATION
  Report Type: 
  Country: None (occurrence: None)
  Receive Date: 20040319
  Receipt Date: 20041010
  Transmission Date: 20041129
  Serious: Yes (Disabling)
  Sender: FDA-Public Use
  Company Number: 2004CG00395

PATIENT
  Age: 51 Year
  Sex: Male
  Weight: 99 kg

DRUGS (2)
  1. ZESTORETIC [Suspect]
     Indication: ESSENTIAL HYPERTENSION
     Dosage: 20 MG +12.5 MG
     Dates: start: 20010101
  2. AMOXICILLIN [Concomitant]

REACTIONS (12)
  - ASTERIXIS [None]
  - ASTHENIA [None]
  - BLOOD CREATINE DECREASED [None]
  - COAGULATION FACTOR V LEVEL DECREASED [None]
  - DIARRHOEA [None]
  - HAEMOCHROMATOSIS [None]
  - HAEMOGLOBIN DECREASED [None]
  - HEPATIC CIRRHOSIS [None]
  - JAUNDICE [None]
  - NEUTROPENIA [None]
  - PYREXIA [None]
  - SLEEP PHASE RHYTHM DISTURBANCE [None]
